FAERS Safety Report 9729743 (Version 2)
Quarter: 2015Q3

REPORT INFORMATION
  Report Type: Spontaneous
  Country: US (occurrence: US)
  Receive Date: 20131204
  Receipt Date: 20150804
  Transmission Date: 20151125
  Serious: No
  Sender: FDA-Public Use
  Company Number: US-GILEAD-2009-0021976

PATIENT
  Age: 69 Year
  Sex: Male
  Weight: 95.25 kg

DRUGS (22)
  1. ALBUTEROL. [Concomitant]
     Active Substance: ALBUTEROL
  2. BIAXIN [Concomitant]
     Active Substance: CLARITHROMYCIN
  3. LETAIRIS [Suspect]
     Active Substance: AMBRISENTAN
     Indication: PULMONARY ARTERIAL HYPERTENSION
     Route: 048
     Dates: start: 20081211
  4. NORVASC [Concomitant]
     Active Substance: AMLODIPINE BESYLATE
  5. ISOSORBIDE. [Concomitant]
     Active Substance: ISOSORBIDE
  6. THEOPHYLLINE [Concomitant]
     Active Substance: THEOPHYLLINE ANHYDROUS
  7. MAXAIR [Concomitant]
     Active Substance: PIRBUTEROL ACETATE
  8. NITROGLYCERIN. [Concomitant]
     Active Substance: NITROGLYCERIN
  9. METOPROLOL [Concomitant]
     Active Substance: METOPROLOL
  10. ASPIRIN. [Concomitant]
     Active Substance: ASPIRIN
  11. LASIX [Concomitant]
     Active Substance: FUROSEMIDE
  12. SYMBICORT [Concomitant]
     Active Substance: BUDESONIDE\FORMOTEROL FUMARATE DIHYDRATE
  13. POTASSIUM CHLORIDE. [Concomitant]
     Active Substance: POTASSIUM CHLORIDE
  14. FLOMAX [Concomitant]
     Active Substance: TAMSULOSIN HYDROCHLORIDE
  15. FACTIVE [Concomitant]
     Active Substance: GEMIFLOXACIN MESYLATE
  16. AMBIEN [Concomitant]
     Active Substance: ZOLPIDEM TARTRATE
  17. METOLAZONE. [Concomitant]
     Active Substance: METOLAZONE
  18. NEXIUM [Concomitant]
     Active Substance: ESOMEPRAZOLE MAGNESIUM
  19. SUCRALFATE. [Concomitant]
     Active Substance: SUCRALFATE
  20. LISINOPRIL. [Concomitant]
     Active Substance: LISINOPRIL
  21. PREDNISONE. [Concomitant]
     Active Substance: PREDNISONE
  22. FERROUS SULFATE [Concomitant]
     Active Substance: FERROUS SULFATE\FERROUS SULFATE, DRIED

REACTIONS (3)
  - Rash maculo-papular [Unknown]
  - Blood disorder [Unknown]
  - Pruritus [Unknown]
